FAERS Safety Report 20743585 (Version 1)
Quarter: 2022Q2

REPORT INFORMATION
  Report Type: Spontaneous
  Country: JP (occurrence: JP)
  Receive Date: 20220425
  Receipt Date: 20220425
  Transmission Date: 20220721
  Serious: Yes (Other)
  Sender: FDA-Public Use
  Company Number: JP-SUN PHARMACEUTICAL INDUSTRIES LTD-2022RR-334113

PATIENT
  Age: 76 Year
  Sex: Male
  Weight: 52 kg

DRUGS (4)
  1. LORAZEPAM [Suspect]
     Active Substance: LORAZEPAM
     Indication: Insomnia
     Dosage: UNK
     Route: 065
  2. LORAZEPAM [Suspect]
     Active Substance: LORAZEPAM
     Indication: Irritability
  3. ETIZOLAM [Suspect]
     Active Substance: ETIZOLAM
     Indication: Irritability
     Dosage: 0.5 MILLIGRAM, DAILY
     Route: 065
  4. ETIZOLAM [Suspect]
     Active Substance: ETIZOLAM
     Indication: Insomnia

REACTIONS (2)
  - Drug ineffective [Unknown]
  - Major depression [Unknown]
